FAERS Safety Report 16853573 (Version 1)
Quarter: 2019Q3

REPORT INFORMATION
  Report Type: Spontaneous
  Country: US (occurrence: US)
  Receive Date: 20190926
  Receipt Date: 20190926
  Transmission Date: 20191005
  Serious: No
  Sender: FDA-Public Use
  Company Number: US-AMGEN-USASP2019156581

PATIENT

DRUGS (2)
  1. ELTROMBOPAG [Concomitant]
     Active Substance: ELTROMBOPAG
     Indication: THROMBOCYTOPENIA
     Dosage: UNK
  2. ROMIPLOSTIM [Suspect]
     Active Substance: ROMIPLOSTIM
     Indication: THROMBOCYTOPENIA
     Dosage: UNK
     Route: 065

REACTIONS (1)
  - Therapy non-responder [Unknown]
